FAERS Safety Report 6225538-6 (Version None)
Quarter: 2009Q2

REPORT INFORMATION
  Report Type: 
  Country: None (occurrence: None)
  Receive Date: 20090612
  Receipt Date: 20090506
  Transmission Date: 20091009
  Serious: Yes (Hospitalization)
  Sender: FDA-Public Use
  Company Number: US-ABBOTT-09P-163-0569406-00

PATIENT
  Sex: Female
  Weight: 120.31 kg

DRUGS (28)
  1. HUMIRA [Suspect]
     Indication: RHEUMATOID ARTHRITIS
     Route: 058
     Dates: start: 20081006, end: 20090301
  2. HUMIRA [Suspect]
     Route: 058
     Dates: start: 20090301
  3. ADVAIR HFA [Concomitant]
     Indication: DRUG USE FOR UNKNOWN INDICATION
     Dosage: DISK
  4. SYNTHROID [Concomitant]
     Indication: DRUG USE FOR UNKNOWN INDICATION
  5. XANAX [Concomitant]
     Indication: DRUG USE FOR UNKNOWN INDICATION
  6. COREG [Concomitant]
     Indication: DRUG USE FOR UNKNOWN INDICATION
  7. PREDNISONE [Concomitant]
     Indication: DRUG USE FOR UNKNOWN INDICATION
  8. PROAIR HFA [Concomitant]
     Indication: DRUG USE FOR UNKNOWN INDICATION
     Route: 055
  9. PULMICORT-100 [Concomitant]
     Indication: DRUG USE FOR UNKNOWN INDICATION
     Route: 055
  10. ALBUTEROL [Concomitant]
     Indication: DRUG USE FOR UNKNOWN INDICATION
     Route: 055
  11. LORTAB [Concomitant]
     Indication: DRUG USE FOR UNKNOWN INDICATION
  12. PRAVASTATIN SODIUM [Concomitant]
     Indication: DRUG USE FOR UNKNOWN INDICATION
  13. LOVAZA [Concomitant]
     Indication: DRUG USE FOR UNKNOWN INDICATION
  14. VITAMIN D [Concomitant]
     Indication: DRUG USE FOR UNKNOWN INDICATION
  15. XYTAL [Concomitant]
     Indication: DRUG USE FOR UNKNOWN INDICATION
  16. VERAMIST [Concomitant]
     Indication: DRUG USE FOR UNKNOWN INDICATION
     Route: 045
  17. PANTONASE [Concomitant]
     Indication: DRUG USE FOR UNKNOWN INDICATION
     Route: 045
  18. ENTOSOL [Concomitant]
     Indication: DRUG USE FOR UNKNOWN INDICATION
     Route: 045
  19. LIBRAX [Concomitant]
     Indication: DRUG USE FOR UNKNOWN INDICATION
  20. METFORMIN HYDROCHLORIDE [Concomitant]
     Indication: DRUG USE FOR UNKNOWN INDICATION
     Dates: end: 20090301
  21. ZANTAC [Concomitant]
     Indication: DRUG USE FOR UNKNOWN INDICATION
     Route: 048
  22. LASIX [Concomitant]
     Indication: DRUG USE FOR UNKNOWN INDICATION
  23. SOMA [Concomitant]
     Indication: DRUG USE FOR UNKNOWN INDICATION
  24. MECILZINE [Concomitant]
     Indication: DIZZINESS
  25. PROMETZINE [Concomitant]
     Indication: NAUSEA
  26. POTASSIUM CHLORIDE [Concomitant]
     Indication: DRUG USE FOR UNKNOWN INDICATION
  27. PEPTOBISMOL [Concomitant]
     Indication: DRUG USE FOR UNKNOWN INDICATION
  28. MILK OF MAGNESIUM [Concomitant]
     Indication: DRUG USE FOR UNKNOWN INDICATION

REACTIONS (14)
  - ABDOMINAL DISCOMFORT [None]
  - BLOOD PRESSURE INCREASED [None]
  - BRONCHITIS [None]
  - CHEST DISCOMFORT [None]
  - DYSPNOEA [None]
  - ERYTHEMA [None]
  - FATIGUE [None]
  - GAIT DISTURBANCE [None]
  - HEPATIC STEATOSIS [None]
  - HIATUS HERNIA [None]
  - HYPERHIDROSIS [None]
  - MUSCULOSKELETAL STIFFNESS [None]
  - PAIN [None]
  - WEIGHT INCREASED [None]
